FAERS Safety Report 8536625-1 (Version None)
Quarter: 2012Q3

REPORT INFORMATION
  Report Type: 
  Country: None (occurrence: None)
  Receive Date: 20120725
  Receipt Date: 20120720
  Transmission Date: 20120928
  Serious: Yes (Life-Threatening)
  Sender: FDA-Public Use
  Company Number: JP-ASTRAZENECA-2012SE47614

PATIENT

DRUGS (3)
  1. ULTIVA [Suspect]
     Route: 065
  2. DIPRIVAN [Suspect]
     Indication: GENERAL ANAESTHESIA
     Route: 042
  3. ROCURONIUM BROMIDE [Suspect]
     Route: 065

REACTIONS (1)
  - ANAPHYLACTIC SHOCK [None]
